FAERS Safety Report 10776136 (Version 1)
Quarter: 2015Q1

REPORT INFORMATION
  Report Type: Spontaneous
  Country: US (occurrence: None)
  Receive Date: 20150205
  Receipt Date: 20150205
  Transmission Date: 20150721
  Serious: No
  Sender: FDA-Public Use
  Company Number: None

PATIENT
  Age: 51 Year
  Sex: Female

DRUGS (2)
  1. MAXALT [Suspect]
     Active Substance: RIZATRIPTAN BENZOATE
     Indication: MIGRAINE
     Dosage: 1 TAB AT ONSET MIGRAINE
     Dates: start: 20140715
  2. MAXALT [Suspect]
     Active Substance: RIZATRIPTAN BENZOATE
     Indication: NERVOUS SYSTEM DISORDER
     Dosage: 1 TAB AT ONSET MIGRAINE
     Dates: start: 20140715

REACTIONS (3)
  - Pain of skin [None]
  - Photophobia [None]
  - Paraesthesia [None]
